FAERS Safety Report 7828563-4 (Version None)
Quarter: 2011Q4

REPORT INFORMATION
  Report Type: 
  Country: None (occurrence: None)
  Receive Date: 20111020
  Receipt Date: 20111020
  Transmission Date: 20120403
  Serious: Yes (Other)
  Sender: FDA-Public Use
  Company Number: None

PATIENT
  Sex: Male
  Weight: 66.678 kg

DRUGS (1)
  1. VENLAFAXINE [Suspect]
     Indication: DEPRESSION
     Dosage: 1 CAP
     Route: 048
     Dates: start: 20111014, end: 20111014

REACTIONS (4)
  - MEDICATION RESIDUE [None]
  - NAUSEA [None]
  - DIARRHOEA [None]
  - WEIGHT DECREASED [None]
